FAERS Safety Report 5255244-6 (Version None)
Quarter: 2007Q1

REPORT INFORMATION
  Report Type: 
  Country: None (occurrence: None)
  Receive Date: 20070305
  Receipt Date: 20070226
  Transmission Date: 20070707
  Serious: Yes (Hospitalization)
  Sender: FDA-Public Use
  Company Number: BR-AVENTIS-200711805GDDC

PATIENT
  Sex: Female
  Weight: 57 kg

DRUGS (8)
  1. LANTUS [Suspect]
     Route: 058
     Dates: end: 20070226
  2. LANTUS [Suspect]
     Route: 058
     Dates: start: 20070227
  3. OPTIPEN (INSULIN PUMP) [Suspect]
     Route: 058
  4. PURAN T4 [Concomitant]
     Indication: HYPOTHYROIDISM
     Route: 048
     Dates: start: 20060101
  5. FLUOXETINE [Concomitant]
     Indication: DEPRESSION
     Route: 048
  6. BIOGLIC [Concomitant]
     Route: 048
     Dates: start: 20070224
  7. RIVOTRIL [Concomitant]
     Indication: ANXIETY
     Route: 048
  8. METFORMIN HCL [Concomitant]
     Dosage: DOSE: UNK
     Dates: end: 20070223

REACTIONS (4)
  - DEPRESSION [None]
  - FATIGUE [None]
  - HYPERGLYCAEMIA [None]
  - KETOACIDOSIS [None]
